FAERS Safety Report 7205444-0 (Version None)
Quarter: 2010Q4

REPORT INFORMATION
  Report Type: 
  Country: None (occurrence: None)
  Receive Date: 20101231
  Receipt Date: 20101220
  Transmission Date: 20110411
  Serious: Yes (Hospitalization)
  Sender: FDA-Public Use
  Company Number: PHHY2010MX39742

PATIENT
  Age: 76 Year
  Sex: Female

DRUGS (3)
  1. ACLASTA [Suspect]
     Indication: OSTEOPOROSIS
     Dosage: 5 MG PER YEAR
     Route: 042
     Dates: start: 20091001, end: 20101001
  2. CALTRATE [Concomitant]
  3. ZINTREPID [Concomitant]

REACTIONS (2)
  - CHONDROPATHY [None]
  - JOINT ARTHROPLASTY [None]
